FAERS Safety Report 8854603 (Version 2)
Quarter: 2012Q4

REPORT INFORMATION
  Report Type: Report from Study
  Country: JP (occurrence: JP)
  Receive Date: 20121023
  Receipt Date: 20121026
  Transmission Date: 20130627
  Serious: Yes (Death)
  Sender: FDA-Public Use
  Company Number: JP-EISAI INC-E2020-11540-CLI-JP

PATIENT
  Age: 85 Year
  Sex: Female
  Weight: 51.1 kg

DRUGS (6)
  1. DONEPEZIL [Suspect]
     Indication: ALZHEIMER^S DISEASE
     Dosage: Double Blind
     Route: 048
     Dates: start: 20120719, end: 201208
  2. DONEPEZIL [Suspect]
     Dosage: Double Blind
     Route: 048
     Dates: start: 201208, end: 20121019
  3. MEMARY [Concomitant]
  4. ZINC OXIDE OINTMENT [Concomitant]
  5. MENTAX [Concomitant]
  6. DERMOSOL [Concomitant]

REACTIONS (1)
  - Subarachnoid haemorrhage [Fatal]
